FAERS Safety Report 13852507 (Version 3)
Quarter: 2019Q2

REPORT INFORMATION
  Report Type: Report from Study
  Country: JP (occurrence: JP)
  Receive Date: 20170810
  Receipt Date: 20190409
  Transmission Date: 20190711
  Serious: Yes (Death, Other)
  Sender: FDA-Public Use
  Company Number: JP-ARIAD PHARMACEUTICALS, INC-2017JP008641

PATIENT
  Age: 62 Year
  Sex: Male
  Weight: 44 kg

DRUGS (3)
  1. PONATINIB [Suspect]
     Active Substance: PONATINIB
     Indication: CHRONIC MYELOID LEUKAEMIA
     Dosage: 15 MILLIGRAM, QD
     Route: 048
     Dates: start: 20170707, end: 20170707
  2. HISHIPHAGEN C [Concomitant]
     Indication: LIVER DISORDER
     Dosage: 20 MILLILITER, QD
     Route: 042
  3. DASATINIB MONOHYDRATE [Concomitant]
     Active Substance: DASATINIB
     Indication: CHRONIC MYELOID LEUKAEMIA
     Dosage: 20 MILLIGRAM, 1/WEEK
     Route: 065
     Dates: start: 20170315, end: 20170706

REACTIONS (2)
  - Chronic myeloid leukaemia [Fatal]
  - Liver disorder [Not Recovered/Not Resolved]

NARRATIVE: CASE EVENT DATE: 20170707
